FAERS Safety Report 4657400-4 (Version None)
Quarter: 2005Q2

REPORT INFORMATION
  Report Type: 
  Country: None (occurrence: None)
  Receive Date: 20050405
  Receipt Date: 20041206
  Transmission Date: 20051028
  Serious: Yes (Other)
  Sender: FDA-Public Use
  Company Number: 2004076161

PATIENT
  Age: 19 Year
  Sex: Male

DRUGS (3)
  1. GEODON [Suspect]
     Indication: MANIA
     Dosage: 160 MG (80 MG, 2 IN 1 D), ORAL
     Route: 048
     Dates: start: 20040901, end: 20041001
  2. OLANZAPINE [Concomitant]
  3. LITHIUM [Concomitant]

REACTIONS (1)
  - ELECTROCARDIOGRAM QT CORRECTED INTERVAL PROLONGED [None]
